FAERS Safety Report 6161355-3 (Version None)
Quarter: 2009Q2

REPORT INFORMATION
  Report Type: 
  Country: None (occurrence: None)
  Receive Date: 20090417
  Receipt Date: 20090413
  Transmission Date: 20091009
  Serious: Yes (Other)
  Sender: FDA-Public Use
  Company Number: CHPA2009US09305

PATIENT
  Age: 32 Year
  Sex: Female
  Weight: 64.9 kg

DRUGS (3)
  1. NICOTINE [Suspect]
     Indication: SMOKING CESSATION THERAPY
     Dosage: 21 MG, QD, TRANSDERMAL
     Route: 062
  2. ATENOLOL [Concomitant]
  3. FISH OIL (FISH OIL) [Concomitant]

REACTIONS (5)
  - ATRIOVENTRICULAR BLOCK [None]
  - DRUG TOXICITY [None]
  - HYPERHIDROSIS [None]
  - OVERDOSE [None]
  - PALPITATIONS [None]
